FAERS Safety Report 6973485-4 (Version None)
Quarter: 2010Q3

REPORT INFORMATION
  Report Type: 
  Country: None (occurrence: None)
  Receive Date: 20100909
  Receipt Date: 20100907
  Transmission Date: 20110219
  Serious: Yes (Hospitalization, Other)
  Sender: FDA-Public Use
  Company Number: US-PFIZER INC-2006126917

PATIENT
  Sex: Male
  Weight: 113 kg

DRUGS (27)
  1. CHANTIX [Interacting]
     Indication: SMOKING CESSATION THERAPY
     Dosage: 0.5 MG, 1X/DAY
     Route: 048
     Dates: start: 20061010, end: 20061011
  2. CHANTIX [Interacting]
     Dosage: 1 MG, 2X/DAY
     Dates: start: 20080701, end: 20080919
  3. CHANTIX [Interacting]
     Dosage: UNK MG, UNK
     Route: 048
  4. CHANTIX [Interacting]
     Dosage: 0.5 MG, 2X/DAY
     Route: 048
     Dates: start: 20080701, end: 20080919
  5. CELEBREX [Suspect]
     Indication: PRODUCT USED FOR UNKNOWN INDICATION
     Dosage: UNK
     Route: 065
  6. LISINOPRIL [Interacting]
     Indication: BLOOD PRESSURE ABNORMAL
     Dosage: 10 MG, UNK
     Route: 048
  7. TRICOR [Suspect]
     Indication: BLOOD CHOLESTEROL INCREASED
     Dosage: 145 MG, UNK
     Route: 048
     Dates: start: 20080901
  8. GRIFULVIN [Suspect]
     Indication: FUNGAL INFECTION
     Dosage: UNK
     Dates: start: 20080301, end: 20080301
  9. PROZAC [Interacting]
     Indication: PRODUCT USED FOR UNKNOWN INDICATION
     Dosage: 60 MG, 1X/DAY
     Route: 048
  10. RISPERDAL [Interacting]
     Indication: PRODUCT USED FOR UNKNOWN INDICATION
     Dosage: UNK, 2X/WEEK
  11. WELCHOL [Interacting]
     Indication: BLOOD CHOLESTEROL ABNORMAL
     Dosage: 650 MG, 3X/DAY
     Route: 048
  12. WELCHOL [Interacting]
     Dosage: 1250 MG, 3X/DAY
     Route: 048
  13. OMEGA-3 MARINE TRIGLYCERIDES [Interacting]
     Indication: BLOOD CHOLESTEROL ABNORMAL
     Dosage: 2 G, 2X/DAY
     Route: 048
  14. OXCARBAZEPINE [Concomitant]
     Indication: PRODUCT USED FOR UNKNOWN INDICATION
     Dosage: UNK
  15. MONTELUKAST SODIUM [Concomitant]
     Indication: PRODUCT USED FOR UNKNOWN INDICATION
     Dosage: UNK
  16. TRAZODONE HCL [Concomitant]
     Indication: PRODUCT USED FOR UNKNOWN INDICATION
     Dosage: UNK
  17. LOVASTATIN [Concomitant]
     Indication: PRODUCT USED FOR UNKNOWN INDICATION
     Dosage: UNK
  18. DOXYCYCLINE [Concomitant]
     Indication: PRODUCT USED FOR UNKNOWN INDICATION
     Dosage: UNK
  19. TENIDAP SODIUM [Concomitant]
     Indication: PRODUCT USED FOR UNKNOWN INDICATION
     Dosage: UNK
  20. TAMSULOSIN HCL [Concomitant]
     Indication: PROSTATIC DISORDER
     Dosage: UNK
  21. METFORMIN [Concomitant]
     Indication: PRODUCT USED FOR UNKNOWN INDICATION
  22. TRAMADOL HCL [Concomitant]
     Indication: PRODUCT USED FOR UNKNOWN INDICATION
     Dosage: UNK
  23. DICLOFENAC [Concomitant]
     Indication: PRODUCT USED FOR UNKNOWN INDICATION
     Dosage: UNK
  24. DEPAKOTE [Concomitant]
     Indication: PRODUCT USED FOR UNKNOWN INDICATION
     Dosage: UNK
  25. ACTOS [Concomitant]
     Indication: PRODUCT USED FOR UNKNOWN INDICATION
     Dosage: UNK
  26. BYETTA [Concomitant]
     Indication: PRODUCT USED FOR UNKNOWN INDICATION
     Dosage: UNK
  27. MAXZIDE [Concomitant]
     Indication: HYPERTENSION

REACTIONS (33)
  - ABDOMINAL DISCOMFORT [None]
  - ABNORMAL DREAMS [None]
  - BACK PAIN [None]
  - BLOOD CHOLESTEROL INCREASED [None]
  - BLOOD POTASSIUM DECREASED [None]
  - CYSTITIS [None]
  - DIARRHOEA [None]
  - DISSOCIATION [None]
  - DRUG DEPENDENCE [None]
  - DRUG INTERACTION [None]
  - FATIGUE [None]
  - FEAR [None]
  - FUNGAL INFECTION [None]
  - GASTROINTESTINAL DISORDER [None]
  - HALLUCINATION [None]
  - HEADACHE [None]
  - INTESTINAL FUNCTIONAL DISORDER [None]
  - KIDNEY INFECTION [None]
  - MEMORY IMPAIRMENT [None]
  - NAUSEA [None]
  - NERVOUSNESS [None]
  - PARANOIA [None]
  - PHOTOPHOBIA [None]
  - PROSTATE INFECTION [None]
  - RASH [None]
  - RENAL FAILURE [None]
  - SURGERY [None]
  - TREMOR [None]
  - TYPE 2 DIABETES MELLITUS [None]
  - URINARY TRACT INFECTION [None]
  - VISUAL IMPAIRMENT [None]
  - VOMITING [None]
  - WEIGHT DECREASED [None]
